FAERS Safety Report 8717191 (Version 4)
Quarter: 2014Q2

REPORT INFORMATION
  Report Type: Report from Study
  Country: CA (occurrence: CA)
  Receive Date: 20120810
  Receipt Date: 20140609
  Transmission Date: 20141212
  Serious: Yes (Life-Threatening, Other)
  Sender: FDA-Public Use
  Company Number: PHHY2012CA066649

PATIENT
  Age: 47 Year
  Sex: Female

DRUGS (3)
  1. CLOZARIL [Suspect]
     Indication: SCHIZOAFFECTIVE DISORDER DEPRESSIVE TYPE
     Dosage: UNK
     Dates: start: 20011026
  2. CLOZARIL [Suspect]
     Indication: SCHIZOAFFECTIVE DISORDER
     Dosage: 325 MG, DAILY
     Route: 048
     Dates: start: 2002
  3. ATIVAN [Concomitant]
     Dosage: 1 MG, BID

REACTIONS (4)
  - Colon cancer [Unknown]
  - Metastases to liver [Unknown]
  - Constipation [Unknown]
  - Colon cancer metastatic [Recovering/Resolving]
